FAERS Safety Report 8791639 (Version 2)
Quarter: 2012Q4

REPORT INFORMATION
  Report Type: 
  Country: US (occurrence: US)
  Receive Date: 20120918
  Receipt Date: 20121003
  Transmission Date: 20130627
  Serious: Yes (Hospitalization)
  Sender: FDA-Public Use
  Company Number: PHEH2012US017628

PATIENT
  Age: 87 Year
  Sex: Female
  Weight: 70.66 kg

DRUGS (2)
  1. GLEEVEC [Suspect]
     Indication: GASTROINTESTINAL NEOPLASM
     Dosage: 300 mg, daily
     Route: 048
     Dates: start: 20100616
  2. SYNTHROID [Concomitant]

REACTIONS (2)
  - Aortic aneurysm [Not Recovered/Not Resolved]
  - Back pain [Not Recovered/Not Resolved]
